FAERS Safety Report 20436772 (Version 1)
Quarter: 2022Q1

REPORT INFORMATION
  Report Type: Spontaneous
  Country: US (occurrence: US)
  Receive Date: 20220207
  Receipt Date: 20220207
  Transmission Date: 20220423
  Serious: No
  Sender: FDA-Public Use
  Company Number: US-ALEMBIC PHARMACUETICALS LIMITED-2022SCAL000017

PATIENT

DRUGS (1)
  1. MODAFINIL [Suspect]
     Active Substance: MODAFINIL
     Indication: Product used for unknown indication
     Dosage: 200 MILLIGRAM, QD
     Route: 065

REACTIONS (3)
  - Therapeutic product effect decreased [Unknown]
  - Somnolence [Unknown]
  - Headache [Unknown]
